FAERS Safety Report 10404150 (Version 1)
Quarter: 2014Q1

REPORT INFORMATION
  Report Type: Spontaneous
  Country: US (occurrence: None)
  Receive Date: 20130927
  Receipt Date: 20130927
  Transmission Date: 20141002
  Serious: Yes (Other)
  Sender: FDA-Public Use
  Company Number: RB-41894-2012

PATIENT
  Age: 28 Year
  Sex: Female

DRUGS (2)
  1. SUBOXONE 8 MG [Suspect]
     Indication: DRUG DEPENDENCE
     Dosage: SUBOXONE FILM SUBLINGUAL
     Route: 060
     Dates: start: 2012, end: 2012
  2. CELEXA [Concomitant]

REACTIONS (4)
  - Pharyngeal oedema [None]
  - Dyspnoea [None]
  - Hypersensitivity [None]
  - Pruritus [None]
